FAERS Safety Report 23140052 (Version 1)
Quarter: 2023Q4

REPORT INFORMATION
  Report Type: Spontaneous
  Country: US (occurrence: US)
  Receive Date: 20231102
  Receipt Date: 20231102
  Transmission Date: 20240110
  Serious: No
  Sender: FDA-Public Use
  Company Number: US-PFIZER INC-202300312324

PATIENT
  Age: 62 Year
  Sex: Female

DRUGS (2)
  1. CIBINQO [Suspect]
     Active Substance: ABROCITINIB
     Indication: Eczema
     Dosage: 100 MG, DAILY
  2. CIBINQO [Suspect]
     Active Substance: ABROCITINIB
     Indication: Dermatitis atopic

REACTIONS (1)
  - Condition aggravated [Unknown]
